FAERS Safety Report 6735439-2 (Version None)
Quarter: 2010Q2

REPORT INFORMATION
  Report Type: 
  Country: None (occurrence: None)
  Receive Date: 20100521
  Receipt Date: 20100510
  Transmission Date: 20101027
  Serious: Yes (Hospitalization, Other)
  Sender: FDA-Public Use
  Company Number: PHHY2010FR29997

PATIENT
  Age: 62 Year
  Sex: Male

DRUGS (5)
  1. CYCLOSPORINE [Suspect]
     Indication: LIVER TRANSPLANT
     Dosage: 400 MG PER DAY
  2. CYCLOSPORINE [Suspect]
     Dosage: 200 MG PER DAY
  3. PREDNISOLONE [Suspect]
     Indication: LIVER TRANSPLANT
     Dosage: 20 MG/DAY
  4. IMMU-G [Concomitant]
     Indication: LIVER TRANSPLANT
     Dosage: FIVE COURSES 0.4 G/KG DAILY
     Route: 042
  5. MYCOPHENOLATE MOFETIL [Concomitant]
     Indication: LIVER TRANSPLANT
     Dosage: 2 G/DAY

REACTIONS (20)
  - AREFLEXIA [None]
  - CHRONIC INFLAMMATORY DEMYELINATING POLYRADICULONEUROPATHY [None]
  - CONDUCTION DISORDER [None]
  - DECREASED VIBRATORY SENSE [None]
  - DEMYELINATING POLYNEUROPATHY [None]
  - ELECTROMYOGRAM ABNORMAL [None]
  - FATIGUE [None]
  - GAIT DISTURBANCE [None]
  - HYPOAESTHESIA [None]
  - INTERVERTEBRAL DISC PROTRUSION [None]
  - MUSCLE ATROPHY [None]
  - MUSCULAR WEAKNESS [None]
  - NERVE CONDUCTION STUDIES ABNORMAL [None]
  - NERVE DEGENERATION [None]
  - PAIN IN EXTREMITY [None]
  - PARAESTHESIA [None]
  - PERIPHERAL SENSORY NEUROPATHY [None]
  - RADICULOPATHY [None]
  - SENSORY LOSS [None]
  - SURGERY [None]
